FAERS Safety Report 12130956 (Version 1)
Quarter: 2016Q1

REPORT INFORMATION
  Report Type: Spontaneous
  Country: FR (occurrence: FR)
  Receive Date: 20160301
  Receipt Date: 20160301
  Transmission Date: 20160526
  Serious: Yes (Hospitalization)
  Sender: FDA-Public Use
  Company Number: FR-TEVA-637703ISR

PATIENT
  Age: 46 Year
  Sex: Male

DRUGS (11)
  1. ETOPOSIDE TEVA [Suspect]
     Active Substance: ETOPOSIDE
     Indication: HODGKIN^S DISEASE RECURRENT
     Dosage: 192 MILLIGRAM DAILY; FIRST COURSE OF ICE PROTOCOL
     Route: 042
     Dates: start: 20160120, end: 20160122
  2. PRIMPERAN 10 MG [Concomitant]
     Active Substance: METOCLOPRAMIDE HYDROCHLORIDE
     Dosage: 30 MILLIGRAM DAILY; AS REQUIRED
     Route: 048
  3. ZOPHREN [Concomitant]
     Active Substance: ONDANSETRON
     Dosage: 8 MILLIGRAM DAILY; FIRST COURSE OF ICE PROTOCOL
     Dates: start: 20160120, end: 20160122
  4. MESNA. [Concomitant]
     Active Substance: MESNA
     Dosage: 11460  DAILY; FIRST COURSE OF ICE PROTOCOL
     Dates: start: 20160121, end: 20160121
  5. TAMIFLU [Suspect]
     Active Substance: OSELTAMIVIR PHOSPHATE
     Indication: ANTIVIRAL PROPHYLAXIS
     Dosage: 75 MILLIGRAM DAILY;
     Route: 048
     Dates: start: 20160201, end: 20160210
  6. GRANOCYTE 34 MUI/ML [Concomitant]
     Dosage: 34 MU DAILY; FIRST COURSE OF ICE PROTOCOL
     Dates: start: 20160125, end: 20160201
  7. CABOPLATINE SUNPHARMA 10 MG/ML [Suspect]
     Active Substance: CARBOPLATIN
     Indication: HODGKIN^S DISEASE RECURRENT
     Dosage: 700 MILLIGRAM DAILY; EXACT FORM: SOLUTION TO DILUTE FOR INFUSION. FIRST COURSE OF ICE PROTOCOL
     Route: 042
     Dates: start: 20160121
  8. HOLOXAN [Suspect]
     Active Substance: IFOSFAMIDE
     Indication: HODGKIN^S DISEASE RECURRENT
     Dosage: 9560 MILLIGRAM DAILY; FIRST COURSE OF ICE PROTOCOL
     Route: 042
     Dates: start: 20160121
  9. INIPOMP 20 MG [Concomitant]
     Dosage: 20 MILLIGRAM DAILY;
     Route: 048
  10. XANAX 0.50 MG [Concomitant]
     Dosage: UP TO THREE TIMES A DAY AS REQUIRED
     Route: 048
  11. MESNA. [Concomitant]
     Active Substance: MESNA
     Dosage: 3820 MILLIGRAM DAILY; FIRST COURSE OF ICE PROTOCOL
     Dates: start: 20160122, end: 20160122

REACTIONS (5)
  - Vomiting [None]
  - Agranulocytosis [None]
  - Erythema [None]
  - Acute coronary syndrome [Unknown]
  - Nasopharyngitis [None]

NARRATIVE: CASE EVENT DATE: 20160208
